FAERS Safety Report 14334191 (Version 1)
Quarter: 2017Q4

REPORT INFORMATION
  Report Type: Spontaneous
  Country: GB (occurrence: GB)
  Receive Date: 20171228
  Receipt Date: 20171228
  Transmission Date: 20180321
  Serious: Yes (Other)
  Sender: FDA-Public Use
  Company Number: PHHY2017GB192694

PATIENT

DRUGS (1)
  1. TEGRETOL [Suspect]
     Active Substance: CARBAMAZEPINE
     Indication: PRODUCT USED FOR UNKNOWN INDICATION
     Route: 065

REACTIONS (8)
  - Seizure [Unknown]
  - Asthenia [Unknown]
  - Anxiety [Unknown]
  - Aggression [Unknown]
  - Stress [Unknown]
  - Ill-defined disorder [Unknown]
  - Pyrexia [Unknown]
  - Personality disorder [Unknown]
